FAERS Safety Report 10056695 (Version 1)
Quarter: 2014Q2

REPORT INFORMATION
  Report Type: Spontaneous
  Country: US (occurrence: US)
  Receive Date: 20140403
  Receipt Date: 20140403
  Transmission Date: 20141212
  Serious: Yes (Hospitalization)
  Sender: FDA-Public Use
  Company Number: PHEH2014US006509

PATIENT
  Sex: Female
  Weight: 43 kg

DRUGS (1)
  1. TEGRETOL [Suspect]
     Dosage: UNK UKN, UNK
     Dates: end: 20140304

REACTIONS (3)
  - Myocardial infarction [Unknown]
  - Weight decreased [Unknown]
  - Blood sodium decreased [Unknown]
